FAERS Safety Report 16446559 (Version 1)
Quarter: 2019Q2

REPORT INFORMATION
  Report Type: Spontaneous
  Country: SE (occurrence: SE)
  Receive Date: 20190618
  Receipt Date: 20190618
  Transmission Date: 20190711
  Serious: Yes (Hospitalization, Other)
  Sender: FDA-Public Use
  Company Number: SE-PFIZER INC-2019255327

PATIENT
  Age: 62 Year
  Sex: Male

DRUGS (11)
  1. GABAPENTIN. [Suspect]
     Active Substance: GABAPENTIN
     Indication: BACK PAIN
     Dosage: 2700 MG, 1X/DAY (300 MG 3X3)
     Route: 048
     Dates: start: 20190315, end: 20190502
  2. VENLAFAXIN [Concomitant]
     Active Substance: VENLAFAXINE HYDROCHLORIDE
     Dosage: UNK
     Dates: start: 20180928
  3. LITHIONIT [Concomitant]
     Active Substance: LITHIUM SULFATE
     Dosage: UNK
     Dates: start: 20171114
  4. BRICANYL [Concomitant]
     Active Substance: TERBUTALINE SULFATE
     Dosage: UNK
     Dates: start: 20171114
  5. PARAFLEX [CHLORZOXAZONE] [Concomitant]
     Dosage: UNK
     Dates: start: 20180831
  6. OMEPRAZOL [Concomitant]
     Active Substance: OMEPRAZOLE
     Dosage: UNK
     Dates: start: 20181109
  7. OXYKODON [Concomitant]
     Dosage: UNK
     Dates: start: 20180413
  8. DUORESP SPIROMAX [Concomitant]
     Active Substance: BUDESONIDE\FORMOTEROL
     Dosage: UNK
     Dates: start: 20181015
  9. INDERAL [Concomitant]
     Active Substance: PROPRANOLOL HYDROCHLORIDE
     Dosage: UNK
     Dates: start: 20171115
  10. DOXAZOSIN [Concomitant]
     Active Substance: DOXAZOSIN\DOXAZOSIN MESYLATE
     Dosage: UNK
     Dates: start: 20181124
  11. ZOPIKLON [Concomitant]
     Active Substance: ZOPICLONE
     Dosage: UNK
     Dates: start: 20171114

REACTIONS (3)
  - Off label use [Unknown]
  - Hallucination, visual [Not Recovered/Not Resolved]
  - Product use in unapproved indication [Unknown]

NARRATIVE: CASE EVENT DATE: 20190315
